FAERS Safety Report 8738289 (Version 2)
Quarter: 2013Q4

REPORT INFORMATION
  Report Type: Report from Study
  Country: US (occurrence: US)
  Receive Date: 20120823
  Receipt Date: 20131105
  Transmission Date: 20140711
  Serious: Yes (Hospitalization)
  Sender: FDA-Public Use
  Company Number: US-009507513-1208USA005485

PATIENT
  Age: 42 Year
  Sex: Male
  Weight: 99.79 kg

DRUGS (3)
  1. TEMOZOLOMIDE [Suspect]
     Indication: SARCOMA
     Dosage: 200 MG/M2, Q4WEEKS
     Route: 048
     Dates: start: 20120716, end: 20120720
  2. VIDAZA [Suspect]
     Indication: SARCOMA
     Dosage: 75 MG/M2, Q4WEEKS
     Route: 058
     Dates: start: 20120709, end: 20120713
  3. MAGNESIA [MILK OF] [Concomitant]
     Dosage: UNK
     Dates: start: 20120805

REACTIONS (2)
  - Anal fistula [Unknown]
  - Constipation [Unknown]
